FAERS Safety Report 14166009 (Version 7)
Quarter: 2018Q1

REPORT INFORMATION
  Report Type: Spontaneous
  Country: US (occurrence: US)
  Receive Date: 20171107
  Receipt Date: 20180306
  Transmission Date: 20180508
  Serious: Yes (Other)
  Sender: FDA-Public Use
  Company Number: US-009507513-1710USA016159

PATIENT
  Sex: Female

DRUGS (1)
  1. NEXPLANON [Suspect]
     Active Substance: ETONOGESTREL
     Dosage: ONE IMPLANT FOR 3 YEARS
     Route: 059
     Dates: start: 2016

REACTIONS (3)
  - Pregnancy with implant contraceptive [Not Recovered/Not Resolved]
  - Complication associated with device [Not Recovered/Not Resolved]
  - Unintended pregnancy [Not Recovered/Not Resolved]
